FAERS Safety Report 5646926-2 (Version None)
Quarter: 2008Q1

REPORT INFORMATION
  Report Type: 
  Country: None (occurrence: None)
  Receive Date: 20080303
  Receipt Date: 20080222
  Transmission Date: 20080703
  Serious: Yes (Other)
  Sender: FDA-Public Use
  Company Number: HQWYE536107DEC06

PATIENT
  Sex: Female

DRUGS (6)
  1. PREMPRO [Suspect]
  2. ESTRATAB [Suspect]
  3. PROVERA [Suspect]
  4. ACTIVELLA [Suspect]
  5. PREMARIN [Suspect]
  6. MEDROXYPROGESTERONE [Suspect]

REACTIONS (1)
  - BREAST CANCER [None]
